FAERS Safety Report 6146661-0 (Version None)
Quarter: 2009Q2

REPORT INFORMATION
  Report Type: 
  Country: None (occurrence: None)
  Receive Date: 20090407
  Receipt Date: 20090330
  Transmission Date: 20091009
  Serious: Yes (Hospitalization, Other)
  Sender: FDA-Public Use
  Company Number: US-ELI_LILLY_AND_COMPANY-US200903007652

PATIENT
  Sex: Male

DRUGS (13)
  1. HUMALOG [Suspect]
     Dosage: UNK, AS NEEDED
     Dates: start: 20070101
  2. HUMALOG [Suspect]
     Dosage: UNK, AS NEEDED
     Dates: start: 20070101
  3. DIGOXIN [Concomitant]
  4. AMORON [Concomitant]
  5. ALLOPURINOL [Concomitant]
  6. THIAMINE HCL [Concomitant]
  7. DOXYCILLIN [Concomitant]
  8. LEVOTHYROXINE SODIUM [Concomitant]
  9. FLOMAX [Concomitant]
  10. LORTAB [Concomitant]
  11. PROMETHAZINE [Concomitant]
  12. COUMADIN [Concomitant]
  13. LANTUS [Concomitant]

REACTIONS (4)
  - DECUBITUS ULCER [None]
  - HYPOGLYCAEMIC UNCONSCIOUSNESS [None]
  - IMPAIRED HEALING [None]
  - SKIN ULCER [None]
